FAERS Safety Report 4449074-2 (Version None)
Quarter: 2004Q3

REPORT INFORMATION
  Report Type: 
  Country: None (occurrence: None)
  Receive Date: 20040909
  Receipt Date: 20040824
  Transmission Date: 20050211
  Serious: Yes (Death, Life-Threatening, Hospitalization)
  Sender: FDA-Public Use
  Company Number: USA040566479

PATIENT
  Age: 45 Year
  Sex: Female

DRUGS (6)
  1. STRATTERA [Suspect]
     Indication: ATTENTION DEFICIT/HYPERACTIVITY DISORDER
     Dosage: 80 MG/ 1 DAY
     Dates: start: 20030122
  2. ZYPREXA [Suspect]
     Indication: AGITATION
     Dosage: 2.5 MG DAY
     Dates: start: 20040201
  3. ZYPREXA [Suspect]
     Indication: ANXIETY
     Dosage: 2.5 MG DAY
     Dates: start: 20040201
  4. ZYPREXA [Suspect]
     Indication: DEPRESSION
     Dosage: 2.5 MG DAY
     Dates: start: 20040201
  5. CELEXA [Concomitant]
  6. MIRAPEX (MIRAPEX) [Concomitant]

REACTIONS (6)
  - AGITATION [None]
  - ANOXIC ENCEPHALOPATHY [None]
  - ANXIETY [None]
  - BRAIN DEATH [None]
  - CARDIAC ARREST [None]
  - LOSS OF CONSCIOUSNESS [None]
